FAERS Safety Report 10224074 (Version 1)
Quarter: 2014Q2

REPORT INFORMATION
  Report Type: Spontaneous
  Country: BR (occurrence: BR)
  Receive Date: 20140609
  Receipt Date: 20140609
  Transmission Date: 20141212
  Serious: Yes (Other)
  Sender: FDA-Public Use
  Company Number: BR-JNJFOC-20140518447

PATIENT
  Age: 80 Year
  Sex: Female

DRUGS (2)
  1. TYLEX [Suspect]
     Route: 048
  2. TYLEX [Suspect]
     Indication: PAIN
     Route: 048

REACTIONS (3)
  - Depression [Unknown]
  - Diarrhoea [Unknown]
  - Nausea [Unknown]
